FAERS Safety Report 9476137 (Version 1)
Quarter: 2013Q3

REPORT INFORMATION
  Report Type: Spontaneous
  Country: DE (occurrence: DE)
  Receive Date: 20130826
  Receipt Date: 20130826
  Transmission Date: 20140515
  Serious: Yes (Hospitalization)
  Sender: FDA-Public Use
  Company Number: DE-ROCHE-1264033

PATIENT
  Age: 51 Year
  Sex: 0

DRUGS (1)
  1. ZELBORAF [Suspect]
     Indication: MALIGNANT MELANOMA
     Route: 065
     Dates: start: 20130806, end: 20130812

REACTIONS (9)
  - Abdominal pain [Unknown]
  - Back pain [Unknown]
  - Frequent bowel movements [Unknown]
  - Musculoskeletal pain [Unknown]
  - Arthralgia [Unknown]
  - Pyrexia [Unknown]
  - Lipase increased [Recovering/Resolving]
  - Pancreatitis [Recovering/Resolving]
  - C-reactive protein increased [Recovering/Resolving]
